FAERS Safety Report 17706454 (Version 1)
Quarter: 2020Q2

REPORT INFORMATION
  Report Type: Spontaneous
  Country: US (occurrence: US)
  Receive Date: 20200424
  Receipt Date: 20200424
  Transmission Date: 20200714
  Serious: Yes (Other)
  Sender: FDA-Public Use
  Company Number: US-JUBILANT CADISTA PHARMACEUTICALS-2019JUB00463

PATIENT
  Age: 45 Year
  Sex: Male

DRUGS (1)
  1. RISPERIDONE. [Suspect]
     Active Substance: RISPERIDONE
     Dosage: 7.5 MG

REACTIONS (1)
  - Gynaecomastia [Not Recovered/Not Resolved]

NARRATIVE: CASE EVENT DATE: 2009
